APPROVED DRUG PRODUCT: FLOVENT
Active Ingredient: FLUTICASONE PROPIONATE
Strength: 0.044MG/INH
Dosage Form/Route: AEROSOL, METERED;INHALATION
Application: N020548 | Product #001
Applicant: GLAXOSMITHKLINE
Approved: Mar 27, 1996 | RLD: No | RS: No | Type: DISCN